FAERS Safety Report 9460211 (Version 2)
Quarter: 2013Q4

REPORT INFORMATION
  Report Type: Spontaneous
  Country: US (occurrence: US)
  Receive Date: 20130815
  Receipt Date: 20131016
  Transmission Date: 20140711
  Serious: No
  Sender: FDA-Public Use
  Company Number: US-PFIZER INC-2013234628

PATIENT
  Sex: Female

DRUGS (1)
  1. PREMARIN [Suspect]
     Indication: VULVOVAGINAL DRYNESS
     Dosage: UNK, 2X/WEEK
     Route: 067
     Dates: start: 20130528, end: 20130810

REACTIONS (2)
  - Medication residue present [Unknown]
  - Drug ineffective [Unknown]
